FAERS Safety Report 8355899-3 (Version None)
Quarter: 2012Q2

REPORT INFORMATION
  Report Type: 
  Country: None (occurrence: None)
  Receive Date: 20120514
  Receipt Date: 20120430
  Transmission Date: 20120825
  Serious: Yes (Other)
  Sender: FDA-Public Use
  Company Number: FR-VERTEX PHARMACEUTICALS INC.-AE-2011-000144

PATIENT
  Sex: Male
  Weight: 65 kg

DRUGS (9)
  1. LEXOMIL [Concomitant]
     Indication: SLEEP DISORDER
  2. LEXOMIL [Concomitant]
     Indication: ANXIETY
  3. RIBAVIRIN [Concomitant]
     Indication: HEPATITIS C
     Route: 048
     Dates: start: 20110314
  4. CHONDROSULF [Concomitant]
     Indication: POLYARTHRITIS
     Route: 048
  5. VX-950 [Suspect]
     Indication: HEPATITIS C
     Route: 048
     Dates: start: 20110314, end: 20110607
  6. PEGINTERFERON ALFA-2A [Concomitant]
     Indication: HEPATITIS C
     Route: 058
     Dates: start: 20110314, end: 20110614
  7. ACETAMINOPHEN [Concomitant]
     Indication: PYREXIA
     Route: 048
     Dates: start: 20110314, end: 20120215
  8. RIBAVIRIN [Concomitant]
     Route: 048
  9. PEGINTERFERON ALFA-2A [Concomitant]
     Route: 058
     Dates: start: 20110621

REACTIONS (3)
  - NEUTROPENIA [None]
  - THROMBOCYTOPENIA [None]
  - ANAEMIA [None]
